FAERS Safety Report 5739215-9 (Version None)
Quarter: 2008Q2

REPORT INFORMATION
  Report Type: 
  Country: None (occurrence: None)
  Receive Date: 20080515
  Receipt Date: 20080512
  Transmission Date: 20081010
  Serious: Yes (Hospitalization, Other)
  Sender: FDA-Public Use
  Company Number: PHHY2008BR06537

PATIENT
  Age: 18 Year
  Sex: Female

DRUGS (2)
  1. METHERGINE [Suspect]
     Indication: HAEMORRHAGE
     Dosage: 1 DF, Q12H
     Route: 048
     Dates: start: 20080414
  2. MICROVAL [Concomitant]
     Dosage: 1 DF, QD
     Route: 048
     Dates: start: 20080315, end: 20080422

REACTIONS (2)
  - METRORRHAGIA [None]
  - WEIGHT INCREASED [None]
